FAERS Safety Report 21994994 (Version 1)
Quarter: 2023Q1

REPORT INFORMATION
  Report Type: Spontaneous
  Country: IT (occurrence: IT)
  Receive Date: 20230215
  Receipt Date: 20230215
  Transmission Date: 20230418
  Serious: Yes (Hospitalization)
  Sender: FDA-Public Use
  Company Number: None

PATIENT
  Age: 3 Year
  Sex: Female

DRUGS (1)
  1. ACYCLOVIR [Suspect]
     Active Substance: ACYCLOVIR
     Indication: Product used for unknown indication
     Dosage: 400 MILLIGRAM
     Route: 048
     Dates: start: 20221217, end: 20221217

REACTIONS (3)
  - Toxicity to various agents [Recovering/Resolving]
  - Malaise [Recovering/Resolving]
  - Intentional product misuse to child [Unknown]

NARRATIVE: CASE EVENT DATE: 20221217
